FAERS Safety Report 23896136 (Version 1)
Quarter: 2024Q2

REPORT INFORMATION
  Report Type: Other
  Country: US (occurrence: US)
  Receive Date: 20240524
  Receipt Date: 20240524
  Transmission Date: 20240715
  Serious: Yes (Life-Threatening, Hospitalization, Other)
  Sender: FDA-Public Use
  Company Number: US-Merck Healthcare KGaA-2024026564

PATIENT
  Age: 49 Year
  Sex: Female

DRUGS (1)
  1. METFORMIN HYDROCHLORIDE [Suspect]
     Active Substance: METFORMIN HYDROCHLORIDE
     Indication: Type 2 diabetes mellitus

REACTIONS (15)
  - Hypotension [Recovered/Resolved]
  - Pulse absent [Recovered/Resolved]
  - Lactic acidosis [Recovered/Resolved]
  - Septic shock [Recovered/Resolved]
  - Toxicity to various agents [Recovered/Resolved]
  - Blood glucose decreased [Recovered/Resolved]
  - Acute kidney injury [Recovered/Resolved]
  - Gastrointestinal oedema [Recovered/Resolved]
  - Pancreatitis [Recovered/Resolved]
  - Hypothermia [Recovered/Resolved]
  - Pneumonia aspiration [Recovered/Resolved]
  - Sterile pyuria [Recovered/Resolved]
  - Mucosal dryness [Recovered/Resolved]
  - Ketonuria [Recovered/Resolved]
  - Contraindicated product administered [Unknown]
